FAERS Safety Report 9442171 (Version 1)
Quarter: 2013Q3

REPORT INFORMATION
  Report Type: Spontaneous
  Country: US (occurrence: None)
  Receive Date: 20130805
  Receipt Date: 20130805
  Transmission Date: 20140515
  Serious: Yes (Hospitalization)
  Sender: FDA-Public Use
  Company Number: None

PATIENT
  Age: 70 Year
  Sex: Female
  Weight: 87.5 kg

DRUGS (14)
  1. OFATUMAMAB [Suspect]
     Indication: CHRONIC LYMPHOCYTIC LEUKAEMIA
     Dosage: 1000MG WEEKLY
     Dates: start: 20130718
  2. HDMP [Suspect]
     Indication: CHRONIC LYMPHOCYTIC LEUKAEMIA
     Dosage: 1000MG  DAY 1,2,3
     Dates: start: 20130718, end: 20130720
  3. ACYCLOVIR [Concomitant]
  4. ALLOPURINOL [Concomitant]
  5. FAMOTIDINE [Concomitant]
  6. LEVOFLOXACIN [Concomitant]
  7. LORAZEPAM [Concomitant]
  8. MULTIVITAMINS [Concomitant]
  9. SINGULAIR [Concomitant]
  10. SYNTHROID [Concomitant]
  11. TRIMETHOPRIM SULFATE [Concomitant]
  12. VORICONAZOLE [Concomitant]
  13. ZYFLO [Concomitant]
  14. ZYTERC [Concomitant]

REACTIONS (6)
  - Flushing [None]
  - Infusion related reaction [None]
  - Swollen tongue [None]
  - Lip swelling [None]
  - Neutropenia [None]
  - Pyrexia [None]
